FAERS Safety Report 14155445 (Version 2)
Quarter: 2017Q4

REPORT INFORMATION
  Report Type: Report from Study
  Country: US (occurrence: US)
  Receive Date: 20171103
  Receipt Date: 20171218
  Transmission Date: 20180321
  Serious: Yes (Hospitalization, Other)
  Sender: FDA-Public Use
  Company Number: US-SA-2017SA213402

PATIENT
  Age: 1 Year
  Sex: Female

DRUGS (1)
  1. LUMIZYME [Suspect]
     Active Substance: ALGLUCOSIDASE ALFA
     Indication: GLYCOGEN STORAGE DISEASE TYPE II
     Dosage: DATE OF FIRST INFUSION/INFUSION NUMBER:  4 TO 6 MONTHS AGO
     Route: 041
     Dates: start: 2017

REACTIONS (5)
  - Device related infection [Not Recovered/Not Resolved]
  - Diarrhoea [Unknown]
  - Intercepted product preparation error [Unknown]
  - Dehydration [Unknown]
  - Hypothermia [Unknown]

NARRATIVE: CASE EVENT DATE: 2017
